FAERS Safety Report 8020909-X (Version None)
Quarter: 2011Q4

REPORT INFORMATION
  Report Type: 
  Country: None (occurrence: None)
  Receive Date: 20111228
  Receipt Date: 20111213
  Transmission Date: 20120403
  Serious: Yes (Hospitalization)
  Sender: FDA-Public Use
  Company Number: 2011S1001683

PATIENT
  Age: 51 Year
  Sex: Female
  Weight: 77.1 kg

DRUGS (8)
  1. ZOFRAN [Concomitant]
  2. LIPOFEN [Suspect]
     Dosage: 150 MG;1X;PO
     Route: 048
     Dates: start: 20111122, end: 20111213
  3. EFFEXOR XR [Concomitant]
  4. SEROQUEL [Concomitant]
  5. LAMICTAL [Concomitant]
  6. BENTYL [Concomitant]
  7. SYNTHROID [Concomitant]
  8. LIVALO [Suspect]
     Dosage: 1X;PO
     Route: 048
     Dates: start: 20111122, end: 20111213

REACTIONS (3)
  - INFLUENZA LIKE ILLNESS [None]
  - NAUSEA [None]
  - FEELING ABNORMAL [None]
